FAERS Safety Report 20813151 (Version 1)
Quarter: 2022Q2

REPORT INFORMATION
  Report Type: Spontaneous
  Country: US (occurrence: US)
  Receive Date: 20220511
  Receipt Date: 20220511
  Transmission Date: 20220721
  Serious: No
  Sender: FDA-Public Use
  Company Number: US-BRISTOL-MYERS SQUIBB COMPANY-2022-020602

PATIENT
  Sex: Female

DRUGS (3)
  1. REVLIMID [Suspect]
     Active Substance: LENALIDOMIDE
     Indication: Plasma cell myeloma
     Dosage: DOSE : UNAVAILALE;     FREQ : DAILY FOR 21 DAYS, OFF FOR 7 DAYS.
     Route: 048
  2. REVLIMID [Suspect]
     Active Substance: LENALIDOMIDE
     Dosage: THE DOCTOR WANTS TO DECREASE THE PATIENT^S REVLIMID TO 10 MG.
  3. VELCADE [Concomitant]
     Active Substance: BORTEZOMIB

REACTIONS (1)
  - White blood cell count decreased [Unknown]
